FAERS Safety Report 4299347-1 (Version None)
Quarter: 2004Q1

REPORT INFORMATION
  Report Type: 
  Country: None (occurrence: None)
  Receive Date: 20040217
  Receipt Date: 20040202
  Transmission Date: 20041129
  Serious: Yes (Congenital Anomaly, Other)
  Sender: FDA-Public Use
  Company Number: DE-SHR-04-020568

PATIENT
  Sex: Female

DRUGS (1)
  1. BETAFERON (INTERFERON BETA-1B) INJECTION, 250 UG [Suspect]

REACTIONS (3)
  - ABORTION SPONTANEOUS [None]
  - CHROMOSOME ABNORMALITY [None]
  - TRANSMISSION OF DRUG VIA SEMEN [None]
